FAERS Safety Report 20045332 (Version 1)
Quarter: 2021Q4

REPORT INFORMATION
  Report Type: Spontaneous
  Country: AR (occurrence: AR)
  Receive Date: 20211108
  Receipt Date: 20211108
  Transmission Date: 20220303
  Serious: Yes (Other)
  Sender: FDA-Public Use
  Company Number: AR-AMNEAL PHARMACEUTICALS-2021-AMRX-04544

PATIENT

DRUGS (1)
  1. TICAGRELOR [Suspect]
     Active Substance: TICAGRELOR
     Indication: Product used for unknown indication
     Dosage: UNK
     Route: 065

REACTIONS (1)
  - Systemic inflammatory response syndrome [Unknown]
